FAERS Safety Report 7571732-1 (Version None)
Quarter: 2011Q2

REPORT INFORMATION
  Report Type: 
  Country: None (occurrence: None)
  Receive Date: 20110624
  Receipt Date: 20110620
  Transmission Date: 20111010
  Serious: Yes (Other)
  Sender: FDA-Public Use
  Company Number: JP-PFIZER INC-2011128237

PATIENT
  Age: 7 Month
  Sex: Male

DRUGS (5)
  1. ATARAX [Suspect]
     Indication: DERMATITIS ATOPIC
     Dosage: 0.15 G, DAILY
     Route: 048
     Dates: start: 20101001, end: 20110413
  2. RIZABEN [Concomitant]
     Indication: DERMATITIS ATOPIC
     Dosage: 0.3 G, DAILY
     Route: 048
     Dates: start: 20101001, end: 20110413
  3. IPD [Concomitant]
     Indication: EOSINOPHIL COUNT INCREASED
     Dosage: UNK
     Route: 048
     Dates: start: 20110301
  4. CELTECT [Concomitant]
     Indication: DERMATITIS ATOPIC
     Dosage: 0.3 G, DAILY
     Route: 048
     Dates: start: 20101001, end: 20110413
  5. THYRADIN [Concomitant]
     Indication: HYPOTHYROIDISM
     Dosage: UNK
     Route: 048
     Dates: start: 20110301

REACTIONS (4)
  - FEEDING DISORDER NEONATAL [None]
  - WEIGHT DECREASED [None]
  - LIVER DISORDER [None]
  - SOMNOLENCE [None]
